FAERS Safety Report 17690354 (Version 1)
Quarter: 2020Q2

REPORT INFORMATION
  Report Type: Spontaneous
  Country: US (occurrence: US)
  Receive Date: 20200421
  Receipt Date: 20200421
  Transmission Date: 20200714
  Serious: No
  Sender: FDA-Public Use
  Company Number: US-BEH-2020115690

PATIENT
  Age: 17 Year
  Sex: Female

DRUGS (4)
  1. BENADRYL [Concomitant]
     Active Substance: DIPHENHYDRAMINE HYDROCHLORIDE
  2. HIZENTRA [Suspect]
     Active Substance: HUMAN IMMUNOGLOBULIN G
     Indication: HYPOGAMMAGLOBULINAEMIA
     Dosage: 14 GRAM, QOW
     Route: 058
     Dates: start: 20200403
  3. BUDESONIDE. [Concomitant]
     Active Substance: BUDESONIDE
     Dosage: 32 MICROGRAM/ACT
  4. DAPTOMYCIN. [Concomitant]
     Active Substance: DAPTOMYCIN
     Dosage: 500 MILLIGRAM

REACTIONS (3)
  - Headache [Recovered/Resolved]
  - Fatigue [Recovered/Resolved]
  - Infusion site swelling [Recovered/Resolved]

NARRATIVE: CASE EVENT DATE: 20200403
